FAERS Safety Report 9442832 (Version 1)
Quarter: 2013Q3

REPORT INFORMATION
  Report Type: Spontaneous
  Country: IT (occurrence: FR)
  Receive Date: 20130806
  Receipt Date: 20130806
  Transmission Date: 20140515
  Serious: Yes (Life-Threatening, Hospitalization)
  Sender: FDA-Public Use
  Company Number: FR-FRI-1000047353

PATIENT
  Age: 82 Year
  Sex: Male

DRUGS (2)
  1. FOSFOMYCIN [Suspect]
     Indication: URINARY TRACT INFECTION
     Dosage: 3 GRAM
     Route: 048
     Dates: start: 20130617
  2. RAMIPRIL [Suspect]
     Indication: HYPERTENSION
     Dosage: 2.5 MG
     Route: 048

REACTIONS (1)
  - Torsade de pointes [Recovered/Resolved]
